FAERS Safety Report 5295503-4 (Version None)
Quarter: 2007Q2

REPORT INFORMATION
  Report Type: 
  Country: None (occurrence: None)
  Receive Date: 20070405
  Receipt Date: 20070326
  Transmission Date: 20071010
  Serious: Yes (Other)
  Sender: FDA-Public Use
  Company Number: CHNY2007JP00993

PATIENT
  Age: 51 Year
  Sex: Male

DRUGS (4)
  1. NICOTINE [Suspect]
     Indication: SMOKING CESSATION THERAPY
     Dosage: 21 MG, QD, TRANSDERMAL
     Route: 062
  2. BEZATOL - SLOW RELEASE (BEZAFIBRATE) [Concomitant]
  3. ALLOPURINOL [Concomitant]
  4. MOHRUS (KETOPROFEN) [Concomitant]

REACTIONS (2)
  - APPLICATION SITE RASH [None]
  - DERMATITIS BULLOUS [None]
